FAERS Safety Report 22643701 (Version 2)
Quarter: 2023Q2

REPORT INFORMATION
  Report Type: Other
  Country: US (occurrence: None)
  Receive Date: 20230627
  Receipt Date: 20230629
  Transmission Date: 20230722
  Serious: Yes (Other)
  Sender: FDA-Public Use
  Company Number: US-ROCHE-3375287

PATIENT
  Age: 33 Year
  Sex: Female
  Weight: 98 kg

DRUGS (25)
  1. XOLAIR [Suspect]
     Active Substance: OMALIZUMAB
     Indication: Asthma
     Dosage: LAST INJECTION DATE: 26/JUL/2021
     Route: 058
  2. XOLAIR [Suspect]
     Active Substance: OMALIZUMAB
  3. XOLAIR [Suspect]
     Active Substance: OMALIZUMAB
  4. XOLAIR [Suspect]
     Active Substance: OMALIZUMAB
     Route: 058
  5. XOLAIR [Suspect]
     Active Substance: OMALIZUMAB
  6. XOLAIR [Suspect]
     Active Substance: OMALIZUMAB
  7. ALBUTEROL SULFATE [Concomitant]
     Active Substance: ALBUTEROL SULFATE
  8. FLONASE [Concomitant]
     Active Substance: FLUTICASONE PROPIONATE
  9. TRELEGY ELLIPTA [Concomitant]
     Active Substance: FLUTICASONE FUROATE\UMECLIDINIUM BROMIDE\VILANTEROL TRIFENATATE
  10. ITRACONAZOLE [Concomitant]
     Active Substance: ITRACONAZOLE
  11. EPINEPHRINE [Concomitant]
     Active Substance: EPINEPHRINE
  12. MONTELUKAST SODIUM [Concomitant]
     Active Substance: MONTELUKAST SODIUM
  13. ZITHROMAX [Concomitant]
     Active Substance: AZITHROMYCIN DIHYDRATE
  14. CAYSTON [Concomitant]
     Active Substance: AZTREONAM
  15. LIOTHYRONINE [Concomitant]
     Active Substance: LIOTHYRONINE
  16. POLYETHYLENE GLYCOL [Concomitant]
     Active Substance: POLYETHYLENE GLYCOL
  17. SODIUM CHLORIDE [Concomitant]
     Active Substance: SODIUM CHLORIDE
  18. TOBI [Concomitant]
     Active Substance: TOBRAMYCIN
  19. TRIKAFTA [Concomitant]
     Active Substance: ELEXACAFTOR\IVACAFTOR\TEZACAFTOR
  20. PULMOZYME [Concomitant]
     Active Substance: DORNASE ALFA
  21. IRON [Concomitant]
     Active Substance: IRON
  22. SPIRIVA RESPIMAT [Concomitant]
     Active Substance: TIOTROPIUM BROMIDE
  23. SYMBICORT [Concomitant]
     Active Substance: BUDESONIDE\FORMOTEROL FUMARATE DIHYDRATE
  24. BREO ELLIPTA [Concomitant]
     Active Substance: FLUTICASONE FUROATE\VILANTEROL TRIFENATATE
  25. ETONOGESTREL [Concomitant]
     Active Substance: ETONOGESTREL

REACTIONS (7)
  - Cystic fibrosis [Unknown]
  - Off label use [Unknown]
  - Nasal septum deviation [Unknown]
  - Pruritus [Unknown]
  - Fungal infection [Unknown]
  - Gastrointestinal pain [Unknown]
  - Anaphylactic reaction [Unknown]
